FAERS Safety Report 14521090 (Version 1)
Quarter: 2018Q1

REPORT INFORMATION
  Report Type: Spontaneous
  Country: None (occurrence: US)
  Receive Date: 20180212
  Receipt Date: 20180212
  Transmission Date: 20180509
  Serious: No
  Sender: FDA-Public Use
  Company Number: US-AMAG PHARMACEUTICALS, INC.-AMAG201700654

PATIENT

DRUGS (1)
  1. MAKENA [Suspect]
     Active Substance: HYDROXYPROGESTERONE CAPROATE
     Indication: PRODUCT USED FOR UNKNOWN INDICATION
     Dosage: UNK
     Route: 065
     Dates: start: 20170203

REACTIONS (6)
  - Back pain [Recovered/Resolved]
  - Arthralgia [Unknown]
  - Fall [Unknown]
  - Injection site bruising [Recovered/Resolved]
  - Headache [Unknown]
  - Muscle strain [Unknown]
